FAERS Safety Report 4628043-3 (Version None)
Quarter: 2005Q2

REPORT INFORMATION
  Report Type: 
  Country: None (occurrence: None)
  Receive Date: 20050401
  Receipt Date: 20050322
  Transmission Date: 20051028
  Serious: Yes (Hospitalization)
  Sender: FDA-Public Use
  Company Number: 05-03-0469

PATIENT
  Age: 49 Year
  Sex: Male
  Weight: 96.6162 kg

DRUGS (7)
  1. CLOZAPINE [Suspect]
     Indication: SCHIZOPHRENIA
     Dosage: 25-750MG QD ORAL
     Route: 048
     Dates: start: 20020601, end: 20050201
  2. HALDOL [Concomitant]
  3. COGENTIN [Concomitant]
  4. DEPAKOTE [Concomitant]
  5. ATIVAN [Concomitant]
  6. ABILIFY [Concomitant]
  7. PERDIEM [Concomitant]

REACTIONS (3)
  - COLITIS ISCHAEMIC [None]
  - CONVULSION [None]
  - SUPERIOR SAGITTAL SINUS THROMBOSIS [None]
